FAERS Safety Report 11364114 (Version 1)
Quarter: 2015Q3

REPORT INFORMATION
  Report Type: Spontaneous
  Country: BR (occurrence: BR)
  Receive Date: 20150811
  Receipt Date: 20150811
  Transmission Date: 20151125
  Serious: Yes (Other)
  Sender: FDA-Public Use
  Company Number: BR-SA-2015SA001872

PATIENT
  Age: 54 Year
  Sex: Female
  Weight: 83 kg

DRUGS (3)
  1. ENDOFOLIN [Concomitant]
     Active Substance: FOLIC ACID
     Indication: PROPHYLAXIS
     Dosage: AFTER LUNCH.
     Route: 048
     Dates: start: 20141230
  2. AAS [Suspect]
     Active Substance: ASPIRIN
     Indication: PROPHYLAXIS OF ABORTION
     Dosage: AAS 100 MG 1 TIME A DAY AFTER LUNCH
     Route: 060
     Dates: start: 20141230
  3. CLEXANE SAFETY LOCK [Suspect]
     Active Substance: ENOXAPARIN SODIUM
     Indication: PROPHYLAXIS OF ABORTION
     Dosage: CLEXANE (ENOXAPARIN SODIUM) 40MG SYRINGES; 1 AMPOULE DAILY AT 12:00 IN THE ABDOMEN
     Dates: start: 20141230

REACTIONS (3)
  - Exposure during pregnancy [Unknown]
  - Injection site mass [Unknown]
  - Abortion spontaneous [Unknown]
